FAERS Safety Report 19681715 (Version 1)
Quarter: 2021Q3

REPORT INFORMATION
  Report Type: Spontaneous
  Country: FR (occurrence: FR)
  Receive Date: 20210810
  Receipt Date: 20210810
  Transmission Date: 20211014
  Serious: Yes (Hospitalization)
  Sender: FDA-Public Use
  Company Number: FR-MYLANLABS-2021M1048684

PATIENT
  Age: 66 Year
  Sex: Male
  Weight: 72.5 kg

DRUGS (4)
  1. IMIPENEM AND CILASTATIN [Suspect]
     Active Substance: CILASTATIN SODIUM\IMIPENEM
     Indication: FEBRILE INFECTION
     Dosage: 3000 MILLIGRAM, QD
     Route: 042
     Dates: start: 20210103, end: 20210106
  2. FENTANYL MYLAN [Suspect]
     Active Substance: FENTANYL
     Indication: PAIN
     Dosage: 60 MICROGRAM, QH
     Route: 042
     Dates: start: 20201226, end: 20210104
  3. ACUPAN [Suspect]
     Active Substance: NEFOPAM HYDROCHLORIDE
     Indication: PAIN
     Dosage: 120 MILLIGRAM, QD
     Route: 042
     Dates: start: 20201226, end: 20210105
  4. HYDROXYZINE MYLAN 25 MG, COMPRIM? PELLICUL? S?CABLE [Suspect]
     Active Substance: HYDROXYZINE HYDROCHLORIDE
     Indication: INSOMNIA
     Dosage: 25 MILLIGRAM, QD
     Route: 048
     Dates: start: 20201229, end: 20210105

REACTIONS (4)
  - Confusional state [Recovered/Resolved]
  - Disorientation [Recovered/Resolved]
  - Hallucination [Recovered/Resolved]
  - Depressed level of consciousness [Recovered/Resolved]

NARRATIVE: CASE EVENT DATE: 20210104
